FAERS Safety Report 25189420 (Version 1)
Quarter: 2025Q2

REPORT INFORMATION
  Report Type: Spontaneous
  Country: US (occurrence: US)
  Receive Date: 20250411
  Receipt Date: 20250411
  Transmission Date: 20250717
  Serious: Yes (Life-Threatening, Hospitalization)
  Sender: MYLAN
  Company Number: US-MYLANLABS-2025M1031408

PATIENT
  Age: 60 Year
  Sex: Male

DRUGS (1)
  1. CITALOPRAM [Suspect]
     Active Substance: CITALOPRAM
     Indication: Product used for unknown indication

REACTIONS (4)
  - Intestinal pseudo-obstruction [Recovering/Resolving]
  - Intentional overdose [Recovering/Resolving]
  - Suicide attempt [Recovering/Resolving]
  - Respiratory distress [Recovering/Resolving]
